FAERS Safety Report 6727046-2 (Version None)
Quarter: 2010Q2

REPORT INFORMATION
  Report Type: 
  Country: None (occurrence: None)
  Receive Date: 20100517
  Receipt Date: 20100507
  Transmission Date: 20101027
  Serious: Yes (Hospitalization)
  Sender: FDA-Public Use
  Company Number: JP-JNJFOC-20100306049

PATIENT
  Sex: Male
  Weight: 69 kg

DRUGS (13)
  1. GOLIMUMAB [Suspect]
     Indication: RHEUMATOID ARTHRITIS
     Route: 058
  2. GOLIMUMAB [Suspect]
     Route: 058
  3. CANDESARTAN CILEXETIL [Concomitant]
     Indication: HYPERTENSION
     Route: 048
  4. MOBIC [Concomitant]
     Indication: RHEUMATOID ARTHRITIS
     Route: 048
  5. MUCOSTA [Concomitant]
     Indication: GASTRITIS PROPHYLAXIS
     Route: 048
  6. CONIEL [Concomitant]
     Indication: HYPERTENSION
     Route: 048
  7. MOHRUS TAPE [Concomitant]
     Indication: RHEUMATOID ARTHRITIS
     Route: 003
  8. ISCOTIN [Concomitant]
     Indication: ANTIBIOTIC PROPHYLAXIS
     Route: 048
  9. ZINC OXIDE [Concomitant]
     Indication: ECZEMA
     Route: 003
  10. PROPADERM [Concomitant]
     Indication: ECZEMA
     Route: 003
  11. GASTER D [Concomitant]
     Indication: GASTRITIS PROPHYLAXIS
     Route: 048
  12. PROTOPIC [Concomitant]
     Indication: ECZEMA
     Route: 003
  13. FLUOCINOLONE ACETONIDE [Concomitant]
     Indication: ECZEMA
     Route: 003

REACTIONS (1)
  - CELLULITIS [None]
